FAERS Safety Report 4398229-4 (Version None)
Quarter: 2004Q3

REPORT INFORMATION
  Report Type: 
  Country: None (occurrence: None)
  Receive Date: 20040715
  Receipt Date: 20040709
  Transmission Date: 20050211
  Serious: Yes (Life-Threatening, Hospitalization)
  Sender: FDA-Public Use
  Company Number: 200416805GDDC

PATIENT
  Age: 82 Year
  Sex: Female

DRUGS (9)
  1. FRUSEMIDE [Suspect]
     Indication: CARDIAC FAILURE CONGESTIVE
     Route: 048
  2. LISINOPRIL [Suspect]
     Indication: BLOOD PRESSURE INCREASED
     Route: 048
  3. LISINOPRIL [Suspect]
     Indication: CARDIAC FAILURE CONGESTIVE
     Route: 048
  4. METFORMIN HCL [Concomitant]
     Indication: DIABETES MELLITUS
     Route: 048
     Dates: start: 19930101, end: 20040621
  5. GLICLAZIDE [Concomitant]
     Indication: DIABETES MELLITUS
     Route: 048
     Dates: end: 20040621
  6. ASPIRIN [Concomitant]
     Indication: CARDIAC FAILURE CONGESTIVE
     Route: 048
     Dates: end: 20040621
  7. ASPIRIN [Concomitant]
     Indication: CEREBROVASCULAR ACCIDENT
     Route: 048
     Dates: end: 20040621
  8. DOXAZOSIN [Concomitant]
     Indication: BLOOD PRESSURE INCREASED
     Route: 048
  9. LOSEC [Concomitant]
     Indication: OESOPHAGITIS
     Route: 048
     Dates: end: 20040621

REACTIONS (3)
  - DIARRHOEA [None]
  - RENAL FAILURE ACUTE [None]
  - VOMITING [None]
